FAERS Safety Report 15857463 (Version 1)
Quarter: 2019Q1

REPORT INFORMATION
  Report Type: Spontaneous
  Country: US (occurrence: US)
  Receive Date: 20190122
  Receipt Date: 20190122
  Transmission Date: 20190417
  Serious: Yes (Life-Threatening)
  Sender: FDA-Public Use
  Company Number: None

PATIENT
  Age: 56 Year
  Sex: Female
  Weight: 113.8 kg

DRUGS (3)
  1. INFUVITE ADULT [Suspect]
     Active Substance: .ALPHA.-TOCOPHEROL ACETATE\ASCORBIC ACID\BIOTIN\CHOLECALCIFEROL\CYANOCOBALAMIN\DEXPANTHENOL\FOLIC ACID\NIACINAMIDE\PHYTONADIONE\PYRIDOXINE HYDROCHLORIDE\RIBOFLAVIN 5^-PHOSPHATE SODIUM\THIAMINE HYDROCHLORIDE\VITAMIN A PALMITATE
     Indication: POSTOPERATIVE CARE
     Dosage: ?          OTHER FREQUENCY:ONCE;?
     Route: 041
  2. FOLIC ACID 1 MG/0.2 ML [Concomitant]
     Dates: start: 20190115, end: 20190115
  3. THIAMINE. [Suspect]
     Active Substance: THIAMINE
     Indication: POSTOPERATIVE CARE
     Dosage: ?          OTHER FREQUENCY:ONCE;?
     Route: 041

REACTIONS (6)
  - Throat tightness [None]
  - Skin discolouration [None]
  - Chest pain [None]
  - Dyspnoea [None]
  - Infusion related reaction [None]
  - Erythema [None]

NARRATIVE: CASE EVENT DATE: 20190115
